FAERS Safety Report 24647241 (Version 3)
Quarter: 2024Q4

REPORT INFORMATION
  Report Type: Report from Study
  Country: CO (occurrence: CO)
  Receive Date: 20241121
  Receipt Date: 20241224
  Transmission Date: 20250115
  Serious: Yes (Other)
  Sender: ROCHE
  Company Number: CO-002147023-NVSC2020CO176432

PATIENT
  Age: 60 Year
  Sex: Male
  Weight: 95 kg

DRUGS (17)
  1. XOLAIR [Suspect]
     Active Substance: OMALIZUMAB
     Indication: Chronic spontaneous urticaria
     Dosage: 300 MG, BIW (ONCE EVERY 2 WEEKS)
     Route: 050
     Dates: start: 2010
  2. XOLAIR [Suspect]
     Active Substance: OMALIZUMAB
     Indication: Idiopathic urticaria
     Dosage: 300 MG (2 OF 150 MG), EVERY 15 DAYS
     Route: 050
     Dates: start: 20110628
  3. XOLAIR [Suspect]
     Active Substance: OMALIZUMAB
     Dosage: 300 MG, QMO
     Route: 050
     Dates: start: 2018
  4. XOLAIR [Suspect]
     Active Substance: OMALIZUMAB
     Dosage: 300 MG, QMO
     Route: 050
     Dates: start: 20180314
  5. XOLAIR [Suspect]
     Active Substance: OMALIZUMAB
     Dosage: UNK
     Route: 065
     Dates: start: 202008
  6. XOLAIR [Suspect]
     Active Substance: OMALIZUMAB
     Route: 050
  7. XOLAIR [Suspect]
     Active Substance: OMALIZUMAB
     Dosage: 300 MG/2, QMO
     Route: 050
     Dates: start: 2011
  8. XOLAIR [Suspect]
     Active Substance: OMALIZUMAB
     Dosage: 300 MG/2, QMO
     Route: 050
  9. XOLAIR [Suspect]
     Active Substance: OMALIZUMAB
     Dosage: 300 MG, QMO (2 OF 150 MG)
     Route: 050
  10. FEXOFENADINE [Concomitant]
     Active Substance: FEXOFENADINE HYDROCHLORIDE
     Indication: Urticaria chronic
     Dosage: UNK
     Route: 065
  11. FEXOFENADINE [Concomitant]
     Active Substance: FEXOFENADINE HYDROCHLORIDE
     Indication: Dermatitis
  12. BILASTINE [Concomitant]
     Active Substance: BILASTINE
     Indication: Urticaria chronic
     Dosage: UNK
     Route: 065
  13. BILASTINE [Concomitant]
     Active Substance: BILASTINE
     Indication: Dermatitis
     Dosage: 2 DOSAGE FORM, IN THE MORNING AND IN THE AFTERNOON
     Route: 065
  14. METHOTREXATE [Concomitant]
     Active Substance: METHOTREXATE
     Indication: Product used for unknown indication
     Dosage: UNK
     Route: 065
  15. METHOTREXATE [Concomitant]
     Active Substance: METHOTREXATE
     Dosage: 20 MG, EVERY 8 DAYS
     Route: 065
  16. FOLIC ACID [Concomitant]
     Active Substance: FOLIC ACID
  17. BETAMETHASONE [Concomitant]
     Active Substance: BETAMETHASONE

REACTIONS (15)
  - Psoriatic arthropathy [Unknown]
  - Drug ineffective [Unknown]
  - Cough [Not Recovered/Not Resolved]
  - Dry skin [Not Recovered/Not Resolved]
  - Limb discomfort [Unknown]
  - Rash [Unknown]
  - Urticaria [Not Recovered/Not Resolved]
  - Therapeutic response shortened [Unknown]
  - Rhinitis [Unknown]
  - Inappropriate schedule of product administration [Unknown]
  - Weight fluctuation [Unknown]
  - Feeling hot [Not Recovered/Not Resolved]
  - Weight increased [Not Recovered/Not Resolved]
  - Bone pain [Not Recovered/Not Resolved]
  - Pain in extremity [Not Recovered/Not Resolved]

NARRATIVE: CASE EVENT DATE: 20100101
